FAERS Safety Report 7553369-3 (Version None)
Quarter: 2011Q2

REPORT INFORMATION
  Report Type: 
  Country: None (occurrence: None)
  Receive Date: 20110617
  Receipt Date: 20110228
  Transmission Date: 20111010
  Serious: No
  Sender: FDA-Public Use
  Company Number: A0916827A

PATIENT
  Age: 78 Year
  Sex: Female
  Weight: 56.8 kg

DRUGS (4)
  1. VITAMIN TAB [Concomitant]
  2. OSCAL [Concomitant]
  3. PROMACTA [Suspect]
     Indication: IDIOPATHIC THROMBOCYTOPENIC PURPURA
     Dosage: 50MG PER DAY
     Route: 048
     Dates: start: 20110208
  4. CENTRUM SILVER [Concomitant]

REACTIONS (11)
  - INSOMNIA [None]
  - POLLAKIURIA [None]
  - HEADACHE [None]
  - VISUAL IMPAIRMENT [None]
  - PAIN [None]
  - GASTROINTESTINAL SOUNDS ABNORMAL [None]
  - DRY MOUTH [None]
  - BLOOD GLUCOSE DECREASED [None]
  - ABDOMINAL PAIN UPPER [None]
  - VITREOUS FLOATERS [None]
  - VISUAL ACUITY REDUCED [None]
